FAERS Safety Report 6882809-8 (Version None)
Quarter: 2010Q3

REPORT INFORMATION
  Report Type: 
  Country: None (occurrence: None)
  Receive Date: 20100702
  Receipt Date: 20090929
  Transmission Date: 20110219
  Serious: Yes (Other)
  Sender: FDA-Public Use
  Company Number: 2009256360

PATIENT
  Sex: Female

DRUGS (2)
  1. ZOLOFT [Suspect]
  2. YAZ [Suspect]

REACTIONS (2)
  - ANGIOEDEMA [None]
  - SOLAR URTICARIA [None]
